FAERS Safety Report 18449609 (Version 1)
Quarter: 2020Q4

REPORT INFORMATION
  Report Type: Spontaneous
  Country: PL (occurrence: PL)
  Receive Date: 20201102
  Receipt Date: 20201102
  Transmission Date: 20210114
  Serious: Yes (Other)
  Sender: FDA-Public Use
  Company Number: PL-SUN PHARMACEUTICAL INDUSTRIES LTD-2020RR-265669

PATIENT
  Age: 32 Year
  Sex: Male

DRUGS (2)
  1. CAPECITABINE. [Suspect]
     Active Substance: CAPECITABINE
     Indication: CHEMOTHERAPY
     Dosage: 750 MILLIGRAM/SQ. METER, BID, 1-4 DAY
     Route: 065
     Dates: end: 201911
  2. TEMOZOLOMIDE. [Suspect]
     Active Substance: TEMOZOLOMIDE
     Indication: CHEMOTHERAPY
     Dosage: 200 MILLIGRAM/SQ. METER, 10-14 DAY, 28-DAY RHYTHM
     Route: 065
     Dates: end: 201911

REACTIONS (4)
  - Myalgia [Unknown]
  - Disease recurrence [Unknown]
  - Asthenia [Unknown]
  - Therapeutic product effect incomplete [Unknown]
